FAERS Safety Report 5011101-1 (Version None)
Quarter: 2006Q2

REPORT INFORMATION
  Report Type: 
  Country: None (occurrence: None)
  Receive Date: 20060523
  Receipt Date: 20060520
  Transmission Date: 20061013
  Serious: Yes (Death)
  Sender: FDA-Public Use
  Company Number: 223774

PATIENT
  Age: 51 Year
  Sex: Female

DRUGS (4)
  1. AVASTIN [Suspect]
     Indication: COLORECTAL CANCER
  2. FLUOROURACIL [Concomitant]
  3. OXALIPLATIN (OXALIPLATIN) [Concomitant]
  4. LEUCOVORIN CALCIUM [Concomitant]

REACTIONS (3)
  - GENERAL PHYSICAL HEALTH DETERIORATION [None]
  - POST PROCEDURAL COMPLICATION [None]
  - PROTEINURIA [None]
